FAERS Safety Report 4436469-6 (Version None)
Quarter: 2004Q3

REPORT INFORMATION
  Report Type: 
  Country: None (occurrence: None)
  Receive Date: 20040830
  Receipt Date: 20040524
  Transmission Date: 20050211
  Serious: No
  Sender: FDA-Public Use
  Company Number: US-BRISTOL-MYERS SQUIBB COMPANY-12594438

PATIENT
  Age: 16 Year
  Sex: Male

DRUGS (6)
  1. ABILIFY [Suspect]
     Indication: IRRITABILITY
     Route: 048
     Dates: start: 20040509, end: 20040522
  2. ABILIFY [Suspect]
     Indication: MOOD SWINGS
     Route: 048
     Dates: start: 20040509, end: 20040522
  3. CLONIDINE HCL [Concomitant]
     Dosage: SEVERAL YEARS' DURATION.
  4. STRATTERA [Concomitant]
  5. RISPERDAL [Concomitant]
     Dosage: SEVERAL YEARS' DURATION
  6. PAXIL [Concomitant]
     Dosage: SEVERAL YEARS' DURATION

REACTIONS (3)
  - ABNORMAL SENSATION IN EYE [None]
  - LACRIMATION INCREASED [None]
  - RHINORRHOEA [None]
